FAERS Safety Report 8717917 (Version 2)
Quarter: 2015Q2

REPORT INFORMATION
  Report Type: Report from Study
  Country: US (occurrence: US)
  Receive Date: 20120810
  Receipt Date: 20150401
  Transmission Date: 20150821
  Serious: Yes (Hospitalization, Other)
  Sender: FDA-Public Use
  Company Number: US-ROCHE-1098780

PATIENT
  Sex: Female

DRUGS (10)
  1. DIMEDROL [Concomitant]
     Active Substance: DIPHENHYDRAMINE
  2. PEPCID [Concomitant]
     Active Substance: FAMOTIDINE
     Route: 042
  3. HEPARIN [Concomitant]
     Active Substance: HEPARIN SODIUM
     Route: 042
  4. LASIX [Concomitant]
     Active Substance: FUROSEMIDE
     Route: 065
  5. LIDOCAINE. [Concomitant]
     Active Substance: LIDOCAINE
     Route: 065
  6. NITROGLYCERINE [Concomitant]
     Active Substance: NITROGLYCERIN
  7. VISTARIL [Concomitant]
     Active Substance: HYDROXYZINE PAMOATE
  8. ACTIVASE [Suspect]
     Active Substance: ALTEPLASE
     Indication: MYOCARDIAL INFARCTION
     Route: 065
  9. MORPHINE [Concomitant]
     Active Substance: MORPHINE
  10. TYLENOL [Concomitant]
     Active Substance: ACETAMINOPHEN

REACTIONS (7)
  - Ventricular tachycardia [Unknown]
  - Nausea [Unknown]
  - Thrombosis [Unknown]
  - Angina unstable [Unknown]
  - Sinus bradycardia [Unknown]
  - Vomiting [Unknown]
  - Atrioventricular block complete [Unknown]
